FAERS Safety Report 10040747 (Version 1)
Quarter: 2014Q1

REPORT INFORMATION
  Report Type: Spontaneous
  Country: US (occurrence: US)
  Receive Date: 20140327
  Receipt Date: 20140327
  Transmission Date: 20141002
  Serious: Yes (Other)
  Sender: FDA-Public Use
  Company Number: US-PFIZER INC-2014083706

PATIENT
  Age: 24 Year
  Sex: Male

DRUGS (2)
  1. GABAPENTIN [Suspect]
     Indication: GRAND MAL CONVULSION
     Dosage: 300 MG, 3X/DAY
  2. GABAPENTIN [Suspect]
     Dosage: 600 MG, 3X/DAY

REACTIONS (8)
  - Dyskinesia [Recovered/Resolved]
  - Oculogyric crisis [Recovered/Resolved]
  - Torticollis [Recovered/Resolved]
  - Opisthotonus [Recovered/Resolved]
  - Trismus [Recovered/Resolved]
  - Dysphagia [Recovered/Resolved]
  - Aphasia [Recovered/Resolved]
  - Drug ineffective [Recovered/Resolved]
